FAERS Safety Report 20703423 (Version 1)
Quarter: 2022Q2

REPORT INFORMATION
  Report Type: Spontaneous
  Country: IT (occurrence: IT)
  Receive Date: 20220413
  Receipt Date: 20220413
  Transmission Date: 20220720
  Serious: Yes (Hospitalization, Other)
  Sender: FDA-Public Use
  Company Number: IT-NOVOPROD-907325

PATIENT
  Sex: Male
  Weight: 4 kg

DRUGS (1)
  1. TRESIBA [Suspect]
     Active Substance: INSULIN DEGLUDEC
     Indication: Type 1 diabetes mellitus
     Dosage: UNK
     Route: 064

REACTIONS (6)
  - Respiratory failure [Recovered/Resolved]
  - Hypertrophic cardiomyopathy [Unknown]
  - Premature baby [Recovered/Resolved]
  - Foetal macrosomia [Unknown]
  - Coagulation test abnormal [Unknown]
  - Foetal exposure during pregnancy [Recovered/Resolved]
